FAERS Safety Report 10447744 (Version 2)
Quarter: 2014Q3

REPORT INFORMATION
  Report Type: Spontaneous
  Country: BR (occurrence: BR)
  Receive Date: 20140911
  Receipt Date: 20140925
  Transmission Date: 20150326
  Serious: Yes (Other)
  Sender: FDA-Public Use
  Company Number: PHHY2014BR117466

PATIENT
  Age: 13 Year
  Sex: Female

DRUGS (7)
  1. PHENERGAN [Concomitant]
     Active Substance: PROMETHAZINE HYDROCHLORIDE
     Indication: SEDATION
     Dosage: 1 DF, QD
     Route: 048
  2. CLOBAZAM [Concomitant]
     Active Substance: CLOBAZAM
     Indication: SOMNOLENCE
  3. RISPERIDONA [Concomitant]
     Active Substance: RISPERIDONE
     Indication: SCHIZOPHRENIA
     Dosage: UNK UKN, UNK (TWO TIMES PER DAY)
     Route: 048
     Dates: start: 2013
  4. RITALIN LA [Suspect]
     Active Substance: METHYLPHENIDATE HYDROCHLORIDE
     Indication: AGITATION
     Dosage: 1 DF, QD (IN THE MORNING)
     Route: 048
  5. RITALIN [Suspect]
     Active Substance: METHYLPHENIDATE HYDROCHLORIDE
     Dosage: UNK UKN, UNK
     Dates: start: 2006
  6. CLOBAZAM [Concomitant]
     Active Substance: CLOBAZAM
     Indication: NERVOUSNESS
     Dosage: 1 DF, BID (ONE AFTER LUNCH AND ONE AT BEDTIME)
     Route: 048
     Dates: start: 2006
  7. PHENERGAN [Concomitant]
     Active Substance: PROMETHAZINE HYDROCHLORIDE
     Indication: HYPERSENSITIVITY

REACTIONS (3)
  - Schizophrenia [Unknown]
  - Disturbance in attention [Recovering/Resolving]
  - Agitation [Recovering/Resolving]

NARRATIVE: CASE EVENT DATE: 2013
